FAERS Safety Report 6463166-8 (Version None)
Quarter: 2009Q4

REPORT INFORMATION
  Report Type: 
  Country: None (occurrence: None)
  Receive Date: 20091123
  Receipt Date: 20091112
  Transmission Date: 20100525
  Serious: Yes (Life-Threatening)
  Sender: FDA-Public Use
  Company Number: 1-20714122

PATIENT

DRUGS (3)
  1. ULTIVA [Suspect]
     Indication: ANAESTHESIA
     Dosage: INTRAVENOUS
     Route: 042
  2. SEVOFLURANE [Suspect]
     Indication: ANAESTHESIA
     Dosage: 2-3%, INHALATION
     Route: 055
  3. ROCURONIUM BROMIDE [Suspect]
     Indication: ANAESTHESIA

REACTIONS (8)
  - BRADYCARDIA [None]
  - CARDIAC ARREST [None]
  - CARDIAC FAILURE CONGESTIVE [None]
  - ELECTROCARDIOGRAM ST SEGMENT DEPRESSION [None]
  - HYPOPERFUSION [None]
  - HYPOVOLAEMIA [None]
  - PULSE ABSENT [None]
  - VENTRICULAR HYPERTROPHY [None]
